FAERS Safety Report 8525854-9 (Version None)
Quarter: 2012Q3

REPORT INFORMATION
  Report Type: 
  Country: None (occurrence: None)
  Receive Date: 20120720
  Receipt Date: 20120717
  Transmission Date: 20120928
  Serious: Yes (Hospitalization, Other)
  Sender: FDA-Public Use
  Company Number: DE-ELI_LILLY_AND_COMPANY-DE201206006333

PATIENT
  Age: 64 Year
  Sex: Female

DRUGS (3)
  1. CALCIMAGON D3 [Concomitant]
  2. MARCUMAR [Concomitant]
  3. FORTEO [Suspect]
     Indication: OSTEOPOROSIS
     Dosage: UNK, QD
     Route: 058
     Dates: start: 20120611

REACTIONS (7)
  - HOSPITALISATION [None]
  - GAMMA-GLUTAMYLTRANSFERASE INCREASED [None]
  - HYPOTENSION [None]
  - INTERNATIONAL NORMALISED RATIO DECREASED [None]
  - RESTLESS LEGS SYNDROME [None]
  - HYPERHIDROSIS [None]
  - PAIN IN EXTREMITY [None]
